FAERS Safety Report 5076491-2 (Version None)
Quarter: 2006Q3

REPORT INFORMATION
  Report Type: 
  Country: None (occurrence: None)
  Receive Date: 20060810
  Receipt Date: 20060328
  Transmission Date: 20061208
  Serious: Yes (Life-Threatening, Hospitalization)
  Sender: FDA-Public Use
  Company Number: FR-BAYER-200610286BFR

PATIENT
  Age: 59 Year
  Sex: Male
  Weight: 71 kg

DRUGS (15)
  1. SORAFENIB [Suspect]
     Indication: METASTATIC RENAL CELL CARCINOMA
     Dosage: TOTAL DAILY DOSE: 800 MG  UNIT DOSE: 200 MG
     Route: 048
     Dates: start: 20040223, end: 20040406
  2. SORAFENIB [Suspect]
     Dosage: TOTAL DAILY DOSE: 800 MG  UNIT DOSE: 200 MG
     Route: 048
     Dates: start: 20040518, end: 20040701
  3. SORAFENIB [Suspect]
     Dosage: UNIT DOSE: 200 MG
     Route: 048
     Dates: start: 20050526
  4. SORAFENIB [Suspect]
     Dosage: TOTAL DAILY DOSE: 800 MG  UNIT DOSE: 200 MG
     Route: 048
     Dates: start: 20040406, end: 20040518
  5. SORAFENIB [Suspect]
     Dosage: TOTAL DAILY DOSE: 400 MG  UNIT DOSE: 200 MG
     Route: 048
     Dates: start: 20040715
  6. SORAFENIB [Suspect]
     Dosage: TOTAL DAILY DOSE: 400 MG  UNIT DOSE: 200 MG
     Route: 048
     Dates: start: 20060119, end: 20060328
  7. MONOTILDIEM [Concomitant]
     Indication: HYPERTENSION
     Dates: start: 20040701
  8. LASILIX [Concomitant]
     Indication: HYPERTENSION
     Dates: start: 20050511
  9. APROVEL [Concomitant]
     Indication: HYPERTENSION
     Dates: start: 20050401
  10. BIAFINE [Concomitant]
     Indication: RASH
     Route: 061
     Dates: start: 20050701, end: 20050801
  11. CETAVLON [Concomitant]
     Indication: RASH
     Route: 061
     Dates: start: 20050701, end: 20050801
  12. DEXERYL [Concomitant]
     Indication: PALMAR-PLANTAR ERYTHRODYSAESTHESIA SYNDROME
     Route: 061
     Dates: start: 20050818, end: 20051123
  13. IMODIUM [Concomitant]
     Indication: DIARRHOEA
     Dates: start: 20051001, end: 20060307
  14. TIORFAN [Concomitant]
     Indication: DIARRHOEA
     Dates: start: 20051123, end: 20060307
  15. NEXIUM [Concomitant]
     Indication: INFECTION PROPHYLAXIS
     Dates: start: 20060331

REACTIONS (9)
  - ANAEMIA [None]
  - ARTERIOSCLEROSIS CORONARY ARTERY [None]
  - CAROTID ARTERY STENOSIS [None]
  - GASTROINTESTINAL HAEMORRHAGE [None]
  - HYPERTENSION [None]
  - MYOCARDIAL INFARCTION [None]
  - MYOCARDIAL ISCHAEMIA [None]
  - OESOPHAGITIS [None]
  - PHLEBITIS [None]
